FAERS Safety Report 6102459-0 (Version None)
Quarter: 2009Q1

REPORT INFORMATION
  Report Type: 
  Country: None (occurrence: None)
  Receive Date: 20090304
  Receipt Date: 20090223
  Transmission Date: 20090719
  Serious: Yes (Hospitalization)
  Sender: FDA-Public Use
  Company Number: GR-ABBOTT-09P-066-0558731-00

PATIENT
  Age: 52 Year
  Sex: Male
  Weight: 55 kg

DRUGS (13)
  1. ZEMPLAR [Suspect]
     Indication: HYPERPARATHYROIDISM SECONDARY
     Route: 042
     Dates: start: 20070222
  2. ARANESP [Concomitant]
     Indication: DRUG USE FOR UNKNOWN INDICATION
  3. VENOFER [Concomitant]
     Indication: DRUG USE FOR UNKNOWN INDICATION
  4. SUPERAMIN [Concomitant]
     Indication: DRUG USE FOR UNKNOWN INDICATION
  5. NEUROBION [Concomitant]
     Indication: DRUG USE FOR UNKNOWN INDICATION
  6. RENAGEL [Concomitant]
     Indication: DRUG USE FOR UNKNOWN INDICATION
  7. SOLUVIT [Concomitant]
     Indication: DRUG USE FOR UNKNOWN INDICATION
  8. FILLICINE [Concomitant]
     Indication: DRUG USE FOR UNKNOWN INDICATION
  9. TESTOVIRON [Concomitant]
     Indication: DRUG USE FOR UNKNOWN INDICATION
  10. OMACOR [Concomitant]
     Indication: DRUG USE FOR UNKNOWN INDICATION
  11. PLAVIX [Concomitant]
     Indication: DRUG USE FOR UNKNOWN INDICATION
  12. LOSEC [Concomitant]
     Indication: DRUG USE FOR UNKNOWN INDICATION
  13. FORSENOL [Concomitant]
     Indication: DRUG USE FOR UNKNOWN INDICATION

REACTIONS (7)
  - ANOREXIA [None]
  - CACHEXIA [None]
  - GASTRINOMA [None]
  - JAUNDICE [None]
  - PANCREATIC CARCINOMA [None]
  - PYREXIA [None]
  - WEIGHT DECREASED [None]
